FAERS Safety Report 10543429 (Version 1)
Quarter: 2014Q4

REPORT INFORMATION
  Report Type: Spontaneous
  Country: US (occurrence: None)
  Receive Date: 20141023
  Receipt Date: 20141023
  Transmission Date: 20150529
  Serious: Yes (Hospitalization)
  Sender: FDA-Public Use
  Company Number: FK201404347

PATIENT
  Age: 15 Year
  Sex: Male
  Weight: 44 kg

DRUGS (3)
  1. CELECOXIB. [Suspect]
     Active Substance: CELECOXIB
     Indication: INFLAMMATORY MYOFIBROBLASTIC TUMOUR
  2. VINBLASTINE SULFATE. [Suspect]
     Active Substance: VINBLASTINE SULFATE
     Indication: INFLAMMATORY MYOFIBROBLASTIC TUMOUR
     Dates: start: 20140617
  3. XALKORI [Concomitant]
     Active Substance: CRIZOTINIB

REACTIONS (18)
  - Malnutrition [None]
  - Heart rate decreased [None]
  - Pyrexia [None]
  - Hypogammaglobulinaemia [None]
  - Respiratory distress [None]
  - Constipation [None]
  - Coagulopathy [None]
  - Weight decreased [None]
  - Ascites [None]
  - Vitamin D deficiency [None]
  - General physical health deterioration [None]
  - Helicobacter gastritis [None]
  - Dumping syndrome [None]
  - Tumour pain [None]
  - Insomnia [None]
  - Thrombocytosis [None]
  - Anaemia [None]
  - Diarrhoea [None]

NARRATIVE: CASE EVENT DATE: 20140703
